FAERS Safety Report 8309548-0 (Version None)
Quarter: 2012Q2

REPORT INFORMATION
  Report Type: 
  Country: None (occurrence: None)
  Receive Date: 20120425
  Receipt Date: 20120420
  Transmission Date: 20120825
  Serious: No
  Sender: FDA-Public Use
  Company Number: US-PFIZER INC-2012098664

PATIENT
  Sex: Male
  Weight: 97.506 kg

DRUGS (5)
  1. VIAGRA [Suspect]
     Indication: ERECTILE DYSFUNCTION
     Dosage: 50 MG, AS NEEDED
     Route: 048
  2. METFORMIN [Concomitant]
     Indication: DIABETES MELLITUS
     Dosage: 1000 MG, 2X/DAY
     Route: 048
  3. PRILOSEC [Concomitant]
     Indication: DYSPEPSIA
     Dosage: 20 MG, 2X/DAY
  4. LEVOTHYROXINE SODIUM [Suspect]
     Dosage: 200 UG, 1X/DAY
  5. LANTUS [Concomitant]
     Indication: DIABETES MELLITUS
     Dosage: UNK, DAILY

REACTIONS (2)
  - DRUG INEFFECTIVE [None]
  - THYROID FUNCTION TEST ABNORMAL [None]
